FAERS Safety Report 4362811-0 (Version None)
Quarter: 2004Q2

REPORT INFORMATION
  Report Type: 
  Country: None (occurrence: None)
  Receive Date: 20040517
  Receipt Date: 20040121
  Transmission Date: 20050107
  Serious: No
  Sender: FDA-Public Use
  Company Number: S04-USA-00745-01

PATIENT
  Age: 90 Year
  Sex: Male

DRUGS (12)
  1. NAMENDA [Suspect]
     Indication: DEMENTIA ALZHEIMER'S TYPE
     Dosage: 5 MG QD PO
     Route: 048
     Dates: start: 20040112, end: 20040120
  2. NAMENDA [Suspect]
     Indication: DEMENTIA ALZHEIMER'S TYPE
     Dosage: 15 MG QD PO
     Route: 048
     Dates: start: 20040202, end: 20040208
  3. NAMENDA [Suspect]
     Indication: DEMENTIA ALZHEIMER'S TYPE
     Dosage: 20 MG QD PO
     Route: 048
     Dates: start: 20040209
  4. NAMENDA [Suspect]
     Indication: DEMENTIA ALZHEIMER'S TYPE
     Dosage: 5 MG QD PO
     Route: 048
     Dates: start: 20040123, end: 20040125
  5. NAMENDA [Suspect]
     Indication: DEMENTIA ALZHEIMER'S TYPE
     Dosage: 10 MG QD PO
     Route: 048
     Dates: start: 20040126, end: 20040201
  6. ZOLOFT [Concomitant]
  7. ISOSORBIDE [Concomitant]
  8. HYDROCHLOROTHIAZIDE [Concomitant]
  9. POTASSIUM [Concomitant]
  10. ZOCOR [Concomitant]
  11. ASPIRIN [Concomitant]
  12. PRILOSEC [Concomitant]

REACTIONS (2)
  - CONFUSIONAL STATE [None]
  - TINNITUS [None]
